FAERS Safety Report 9754400 (Version 1)
Quarter: 2013Q4

REPORT INFORMATION
  Report Type: Spontaneous
  Country: CA (occurrence: None)
  Receive Date: 20131211
  Receipt Date: 20131211
  Transmission Date: 20140711
  Serious: Yes (Death)
  Sender: FDA-Public Use
  Company Number: A1052295A

PATIENT
  Age: 72 Year
  Sex: Female
  Weight: 152.9 kg

DRUGS (3)
  1. SODIUM FLUORIDE + POTASSIUM NITRATE [Suspect]
     Indication: PRODUCT USED FOR UNKNOWN INDICATION
  2. ANTIHYPERTENSIVE [Concomitant]
  3. FISH OIL [Concomitant]

REACTIONS (2)
  - Swelling face [None]
  - Oedema peripheral [None]
